FAERS Safety Report 12443025 (Version 2)
Quarter: 2016Q2

REPORT INFORMATION
  Report Type: Report from Study
  Country: US (occurrence: US)
  Receive Date: 20160607
  Receipt Date: 20160617
  Transmission Date: 20160815
  Serious: Yes (Hospitalization, Other)
  Sender: FDA-Public Use
  Company Number: US-GILEAD-2016-0217148

PATIENT
  Age: 41 Year
  Sex: Female

DRUGS (13)
  1. ISOPHANE INSULIN [Concomitant]
     Active Substance: INSULIN NOS
  2. FOLIC ACID. [Concomitant]
     Active Substance: FOLIC ACID
  3. BUDESONIDE. [Concomitant]
     Active Substance: BUDESONIDE
  4. ASA [Concomitant]
     Active Substance: ASPIRIN
  5. FUROSEMIDE. [Concomitant]
     Active Substance: FUROSEMIDE
  6. AMBRISENTAN [Suspect]
     Active Substance: AMBRISENTAN
     Indication: PRODUCT USED FOR UNKNOWN INDICATION
     Dosage: 10 MG, QD
     Route: 065
  7. METHOTREXATE [Concomitant]
     Active Substance: METHOTREXATE
  8. ATORVASTATIN [Concomitant]
     Active Substance: ATORVASTATIN
  9. ALBUTEROL                          /00139501/ [Concomitant]
     Active Substance: ALBUTEROL
  10. SINGULAIR [Concomitant]
     Active Substance: MONTELUKAST SODIUM
  11. LISPRO INSULIN [Concomitant]
     Active Substance: INSULIN LISPRO
  12. SILDENAFIL. [Concomitant]
     Active Substance: SILDENAFIL
  13. OXYCODONE [Concomitant]
     Active Substance: OXYCODONE

REACTIONS (4)
  - Cerebrovascular accident [Recovered/Resolved]
  - Oedema [Unknown]
  - Fluid overload [Recovered/Resolved]
  - Right ventricular failure [Unknown]
